FAERS Safety Report 23672686 (Version 1)
Quarter: 2024Q1

REPORT INFORMATION
  Report Type: Spontaneous
  Country: US (occurrence: None)
  Receive Date: 20240325
  Receipt Date: 20240325
  Transmission Date: 20240410
  Serious: Yes (Other)
  Sender: FDA-Public Use
  Company Number: None

PATIENT
  Sex: Female
  Weight: 89.1 kg

DRUGS (1)
  1. CELECOXIB [Suspect]
     Active Substance: CELECOXIB
     Indication: Back pain
     Dosage: FREQUENCY : TWICE A DAY;?

REACTIONS (5)
  - Hot flush [None]
  - Vitreous floaters [None]
  - Vision blurred [None]
  - Therapy interrupted [None]
  - Back pain [None]
